FAERS Safety Report 25497598 (Version 1)
Quarter: 2025Q3

REPORT INFORMATION
  Report Type: Report from Study
  Country: US (occurrence: US)
  Receive Date: 20250701
  Receipt Date: 20250701
  Transmission Date: 20251021
  Serious: Yes (Other)
  Sender: ABBVIE
  Company Number: US-ABBVIE-6337538

PATIENT
  Age: 62 Year
  Sex: Male
  Weight: 127 kg

DRUGS (1)
  1. HUMIRA [Suspect]
     Active Substance: ADALIMUMAB
     Indication: Product used for unknown indication
     Dosage: CITRATE FREE?STRENGTH: 40MG/0.4ML
     Route: 058
     Dates: start: 20241213

REACTIONS (1)
  - Precancerous skin lesion [Recovering/Resolving]

NARRATIVE: CASE EVENT DATE: 20250616
